FAERS Safety Report 18957914 (Version 1)
Quarter: 2021Q1

REPORT INFORMATION
  Report Type: Spontaneous
  Country: IT (occurrence: IT)
  Receive Date: 20210302
  Receipt Date: 20210302
  Transmission Date: 20210420
  Serious: Yes (Other)
  Sender: FDA-Public Use
  Company Number: IT-AMGEN-ITASP2021029354

PATIENT
  Age: 65 Year

DRUGS (1)
  1. MVASI [Suspect]
     Active Substance: BEVACIZUMAB-AWWB
     Indication: PRODUCT USED FOR UNKNOWN INDICATION
     Dosage: 0.5 MICROGRAM
     Route: 065
     Dates: start: 20201028, end: 20210113

REACTIONS (2)
  - Drug ineffective [Unknown]
  - Macular oedema [Unknown]

NARRATIVE: CASE EVENT DATE: 20210204
